FAERS Safety Report 4304364-9 (Version None)
Quarter: 2004Q1

REPORT INFORMATION
  Report Type: 
  Country: None (occurrence: None)
  Receive Date: 20040224
  Receipt Date: 20040210
  Transmission Date: 20041129
  Serious: Yes (Death)
  Sender: FDA-Public Use
  Company Number: US-JNJFOC-20030903697

PATIENT
  Age: 86 Year
  Sex: Female

DRUGS (6)
  1. REMICADE [Suspect]
     Indication: RHEUMATOID ARTHRITIS
     Dosage: INTRAVENOUS
     Route: 042
     Dates: start: 20010101
  2. PROPOXY (DEXTROPROPOXYPHENE) [Concomitant]
  3. AMITRYPTYLIN [Concomitant]
  4. NORVASC [Concomitant]
  5. ATENOLOL [Concomitant]
  6. BAB ASPIRIN (ACETYLSALICYLIC ACID) [Concomitant]

REACTIONS (6)
  - GAIT DISTURBANCE [None]
  - HERPES ZOSTER [None]
  - INFECTION [None]
  - POST HERPETIC NEURALGIA [None]
  - RESPIRATORY FAILURE [None]
  - TUBERCULOSIS [None]
